FAERS Safety Report 9529772 (Version 1)
Quarter: 2013Q1

REPORT INFORMATION
  Report Type: Spontaneous
  Country: US (occurrence: None)
  Receive Date: 20130318
  Receipt Date: 20130318
  Transmission Date: 20140127
  Serious: Yes (Other)
  Sender: FDA-Public Use
  Company Number: 2012SP012849

PATIENT
  Age: 51 Year
  Sex: Female

DRUGS (6)
  1. PEGINTRON (PEGINTERFERON ALFA-2B) POWDER FOR INJECTION [Suspect]
     Indication: HEPATITIS C
     Dosage: 0.4 ML OF 120 MCG, SUBCUTANEOUS
     Route: 058
     Dates: start: 20120227, end: 20121031
  2. RIBAVIRIN (RIBAVIRIN) TABLET, 200 MG [Suspect]
     Route: 048
     Dates: start: 20120227, end: 20121031
  3. LAMICTAL (LAMOTRIGINE) [Concomitant]
  4. WELLBUTRIN (BUPROPION HYDROCHLORIDE) [Concomitant]
  5. ARMOUR THYROID TABLETS (THYROID) [Concomitant]
  6. KLONOPIN (CLONAZEPAM) (TABLETS) [Concomitant]

REACTIONS (7)
  - Convulsion [None]
  - Sensation of heaviness [None]
  - Incorrect dose administered [None]
  - Migraine [None]
  - Malaise [None]
  - Drug ineffective [None]
  - Therapeutic response decreased [None]
